FAERS Safety Report 6585327-X (Version None)
Quarter: 2010Q1

REPORT INFORMATION
  Report Type: 
  Country: None (occurrence: None)
  Receive Date: 20100201
  Receipt Date: 20090415
  Transmission Date: 20100710
  Serious: Yes (Hospitalization)
  Sender: FDA-Public Use
  Company Number: 8044803

PATIENT
  Sex: Female

DRUGS (3)
  1. KEPPRA [Suspect]
     Indication: CONVULSION
     Dosage: 750 MG BID, RESTART 4-FEB-2009 ORAL
     Route: 048
     Dates: end: 20090101
  2. LEVETIRACETAM [Suspect]
     Indication: CONVULSION
     Dosage: 750 MG BID ORAL
     Route: 048
     Dates: start: 20090101, end: 20090203
  3. PHENOBARBITAL TAB [Concomitant]

REACTIONS (2)
  - CONVULSION [None]
  - FALL [None]
